FAERS Safety Report 6644587-7 (Version None)
Quarter: 2010Q1

REPORT INFORMATION
  Report Type: 
  Country: None (occurrence: None)
  Receive Date: 20100322
  Receipt Date: 20100308
  Transmission Date: 20100710
  Serious: Yes (Hospitalization)
  Sender: FDA-Public Use
  Company Number: JP-ABBOTT-09P-087-0592255-00

PATIENT
  Sex: Female

DRUGS (5)
  1. HUMIRA [Suspect]
     Indication: RHEUMATOID ARTHRITIS
     Route: 058
     Dates: start: 20090715, end: 20090729
  2. TIOPRONIN [Concomitant]
     Indication: RHEUMATOID ARTHRITIS
     Dates: end: 20090817
  3. PREDNISOLONE [Concomitant]
     Indication: RHEUMATOID ARTHRITIS
     Route: 048
     Dates: end: 20090817
  4. CELECOXIB [Concomitant]
     Indication: RHEUMATOID ARTHRITIS
     Dates: end: 20090817
  5. REBAMIPIDE [Concomitant]
     Indication: GASTRITIS PROPHYLAXIS
     Dates: end: 20090817

REACTIONS (2)
  - PNEUMONIA [None]
  - TUBERCULOUS PLEURISY [None]
